FAERS Safety Report 4589452-4 (Version None)
Quarter: 2005Q1

REPORT INFORMATION
  Report Type: 
  Country: None (occurrence: None)
  Receive Date: 20050218
  Receipt Date: 20050215
  Transmission Date: 20050727
  Serious: Yes (Hospitalization)
  Sender: FDA-Public Use
  Company Number: DL2005053

PATIENT
  Age: 34 Year
  Sex: Female

DRUGS (2)
  1. MIFEPRISTONE TABLETS, 200 MG (DANCO LABS) [Suspect]
     Indication: ABORTION INDUCED
     Dosage: 200 MG, ORAL
     Route: 048
     Dates: start: 20041222
  2. MISOPROSTOL [Suspect]
     Dosage: 800 MCG, VAGINAL
     Route: 067
     Dates: start: 20041223

REACTIONS (6)
  - ABDOMINAL PAIN [None]
  - NAUSEA [None]
  - PAIN [None]
  - PYELONEPHRITIS [None]
  - THROMBOSIS [None]
  - UTERINE DISORDER [None]
